FAERS Safety Report 10427629 (Version 1)
Quarter: 2014Q3

REPORT INFORMATION
  Report Type: Spontaneous
  Country: JP (occurrence: JP)
  Receive Date: 20140903
  Receipt Date: 20140903
  Transmission Date: 20150326
  Serious: Yes (Other)
  Sender: FDA-Public Use
  Company Number: PHHY2013JP161804

PATIENT
  Age: 80 Year
  Sex: Male

DRUGS (2)
  1. GLIVEC [Suspect]
     Active Substance: IMATINIB MESYLATE
     Indication: CHRONIC MYELOID LEUKAEMIA
     Dosage: 400 MG, DAILY
  2. GLIVEC [Suspect]
     Active Substance: IMATINIB MESYLATE
     Dosage: 300 MG, UNK
     Dates: end: 20110301

REACTIONS (6)
  - Decreased appetite [Unknown]
  - Nasopharyngitis [Unknown]
  - Rash [Unknown]
  - Diabetes mellitus [Unknown]
  - Weight decreased [Unknown]
  - Diarrhoea [Unknown]
